FAERS Safety Report 24080216 (Version 1)
Quarter: 2024Q3

REPORT INFORMATION
  Report Type: Spontaneous
  Country: FR (occurrence: None)
  Receive Date: 20240711
  Receipt Date: 20240711
  Transmission Date: 20241017
  Serious: Yes (Other)
  Sender: ASTRAZENECA
  Company Number: 2024A158366

PATIENT
  Age: 59 Year
  Sex: Male
  Weight: 54 kg

DRUGS (1)
  1. DURVALUMAB [Suspect]
     Active Substance: DURVALUMAB
     Indication: Non-small cell lung cancer
     Dates: start: 20200615, end: 20210224

REACTIONS (7)
  - Pneumonitis [Unknown]
  - Neutropenia [Unknown]
  - Toxicity to various agents [Unknown]
  - Asthenia [Unknown]
  - Oesophagitis [Unknown]
  - Epithelitis [Unknown]
  - Off label use [Unknown]
